FAERS Safety Report 4512137-7 (Version None)
Quarter: 2004Q4

REPORT INFORMATION
  Report Type: 
  Country: None (occurrence: None)
  Receive Date: 20041129
  Receipt Date: 20040127
  Transmission Date: 20050328
  Serious: No
  Sender: FDA-Public Use
  Company Number: US-GLAXOSMITHKLINE-A0495543A

PATIENT
  Age: 80 Year
  Sex: Female

DRUGS (9)
  1. LANOXIN [Suspect]
     Indication: ATRIAL FIBRILLATION
     Dosage: .25MG PER DAY
     Route: 048
     Dates: start: 20031217
  2. LOPRESSOR [Concomitant]
     Indication: ATRIAL FIBRILLATION
     Dates: start: 20031201
  3. COUMADIN [Concomitant]
     Dates: start: 20031201
  4. HYDROCHLOROTHIAZIDE [Concomitant]
     Indication: ATRIAL FIBRILLATION
  5. SYNTHROID [Concomitant]
  6. VITAMIN E [Concomitant]
  7. CALCIUM SUPPLEMENT [Concomitant]
  8. MULTI-VITAMIN [Concomitant]
  9. COD LIVER OIL [Concomitant]

REACTIONS (2)
  - EYELID FUNCTION DISORDER [None]
  - VISUAL FIELD DEFECT [None]
